FAERS Safety Report 8735501 (Version 6)
Quarter: 2012Q4

REPORT INFORMATION
  Report Type: 
  Country: US (occurrence: US)
  Receive Date: 20120822
  Receipt Date: 20121105
  Transmission Date: 20130627
  Serious: Yes (Hospitalization, Disabling, Other)
  Sender: FDA-Public Use
  Company Number: PHEH2012US015964

PATIENT
  Age: 55 Year
  Sex: Female
  Weight: 74.8 kg

DRUGS (9)
  1. GILENYA [Suspect]
     Indication: RELAPSING-REMITTING MULTIPLE SCLEROSIS
     Dosage: 0.5 mg, QD
     Route: 048
     Dates: start: 20110617
  2. SYMMETREL [Concomitant]
     Dosage: 100 mg, BID
     Route: 048
  3. FISH OIL [Concomitant]
     Route: 048
  4. CALCIUM [Concomitant]
     Route: 048
  5. MULTIVITAMINS [Concomitant]
     Route: 048
  6. VITAMIN E [Concomitant]
     Dosage: 400 U, daily
     Route: 048
  7. NEURONTIN [Concomitant]
     Dosage: 600 mg, every three hour
     Route: 048
  8. CIPRO [Concomitant]
     Dosage: 250 mg, UNK
     Route: 048
  9. PRAVACHOL [Concomitant]
     Dosage: 40 mg, UNK
     Route: 048

REACTIONS (3)
  - Breast cancer [Recovering/Resolving]
  - Ecchymosis [Unknown]
  - Blood pressure increased [Unknown]
